FAERS Safety Report 9240673 (Version 1)
Quarter: 2013Q1

REPORT INFORMATION
  Report Type: Spontaneous
  Country: US (occurrence: None)
  Receive Date: 20121120
  Receipt Date: 20121120
  Transmission Date: 20140127
  Serious: No
  Sender: FDA-Public Use
  Company Number: 1000037885

PATIENT
  Sex: Male

DRUGS (1)
  1. VIIBRYD [Suspect]
     Route: 048

REACTIONS (2)
  - Drug ineffective [None]
  - Dizziness [None]
